FAERS Safety Report 6823793-2 (Version None)
Quarter: 2010Q3

REPORT INFORMATION
  Report Type: 
  Country: None (occurrence: None)
  Receive Date: 20100708
  Receipt Date: 20061006
  Transmission Date: 20110219
  Serious: No
  Sender: FDA-Public Use
  Company Number: US-PFIZER INC-2006098676

PATIENT
  Sex: Female
  Weight: 59.87 kg

DRUGS (5)
  1. CHANTIX [Suspect]
     Indication: SMOKING CESSATION THERAPY
     Dosage: DAILY
     Dates: start: 20060801
  2. MOTRIN [Concomitant]
     Route: 065
  3. ENBREL [Concomitant]
     Route: 065
  4. PREVACID [Concomitant]
     Route: 065
  5. ALL OTHER THERAPEUTIC PRODUCTS [Concomitant]
     Route: 065

REACTIONS (1)
  - DRUG INEFFECTIVE [None]
